FAERS Safety Report 19868321 (Version 4)
Quarter: 2022Q2

REPORT INFORMATION
  Report Type: Report from Study
  Country: CH (occurrence: CH)
  Receive Date: 20210921
  Receipt Date: 20220418
  Transmission Date: 20220721
  Serious: Yes (Death, Hospitalization, Other)
  Sender: FDA-Public Use
  Company Number: CH-GILEAD-2021-0549398

PATIENT
  Sex: Female

DRUGS (1)
  1. SACITUZUMAB GOVITECAN [Suspect]
     Active Substance: SACITUZUMAB GOVITECAN
     Indication: Triple negative breast cancer
     Dosage: 10 MG/KG, D1+8 Q3D.
     Route: 065
     Dates: start: 202103, end: 202108

REACTIONS (2)
  - Disease progression [Fatal]
  - Diarrhoea [Unknown]

NARRATIVE: CASE EVENT DATE: 20210801
